FAERS Safety Report 9641822 (Version 2)
Quarter: 2013Q4

REPORT INFORMATION
  Report Type: Spontaneous
  Country: FI (occurrence: FI)
  Receive Date: 20131023
  Receipt Date: 20131023
  Transmission Date: 20140711
  Serious: Yes (Death, Life-Threatening, Hospitalization)
  Sender: FDA-Public Use
  Company Number: FI-ROCHE-538322

PATIENT
  Sex: Male

DRUGS (1)
  1. XELODA [Suspect]
     Indication: GASTRIC CANCER
     Route: 048
     Dates: start: 20071122, end: 20071206

REACTIONS (6)
  - Pancytopenia [Fatal]
  - Diarrhoea [Fatal]
  - Renal failure [Fatal]
  - General physical health deterioration [Fatal]
  - Mucosal exfoliation [Fatal]
  - Skin exfoliation [Fatal]
